FAERS Safety Report 5309268-0 (Version None)
Quarter: 2007Q1

REPORT INFORMATION
  Report Type: 
  Country: None (occurrence: None)
  Receive Date: 20070201
  Receipt Date: 20061229
  Transmission Date: 20070707
  Serious: No
  Sender: FDA-Public Use
  Company Number: 2007PV27603

PATIENT
  Age: 62 Year
  Sex: Female
  Weight: 111.1313 kg

DRUGS (5)
  1. BYETTA [Suspect]
     Indication: DIABETES MELLITUS NON-INSULIN-DEPENDENT
     Dosage: 5 MCG; BID; SC
     Route: 058
     Dates: start: 20061227
  2. GLUCOVANCE [Concomitant]
  3. HUMALOG [Concomitant]
  4. HUMULIN N [Concomitant]
  5. CIPROFLAXIN [Concomitant]

REACTIONS (4)
  - BLOOD GLUCOSE FLUCTUATION [None]
  - ERUCTATION [None]
  - GASTROOESOPHAGEAL REFLUX DISEASE [None]
  - TREMOR [None]
